FAERS Safety Report 6268473-X (Version None)
Quarter: 2009Q3

REPORT INFORMATION
  Report Type: 
  Country: None (occurrence: None)
  Receive Date: 20090715
  Receipt Date: 20070619
  Transmission Date: 20100115
  Serious: Yes (Other)
  Sender: FDA-Public Use
  Company Number: US-ASTRAZENECA-2006UW11684

PATIENT
  Age: 15590 Day
  Sex: Male
  Weight: 49 kg

DRUGS (24)
  1. SEROQUEL [Suspect]
     Dosage: 25 - 400MG
     Route: 048
     Dates: start: 19981217, end: 20060210
  2. SEROQUEL [Suspect]
     Route: 048
     Dates: end: 20060101
  3. ZYPREXA [Suspect]
  4. CLOZARIL [Suspect]
  5. ABILIFY [Concomitant]
  6. GEODON [Concomitant]
  7. HALDOL [Concomitant]
  8. RISPERDAL [Concomitant]
  9. GLIPIZIDE [Concomitant]
     Dosage: 10MG-20MG TWICE A DAY
     Route: 048
  10. AMITRIPTYLINE [Concomitant]
     Dosage: 10MG-25MG AT BEDTIME
     Route: 048
  11. ZOLOFT [Concomitant]
     Dosage: 100MG-150MG
     Route: 048
  12. LISINOPRIL [Concomitant]
     Dosage: 20MG-40MG AT EVERY NIGHT
     Route: 048
  13. HYDROCHLOROTHIAZIDE [Concomitant]
     Dosage: 12.5MG- 50MG DAILY
     Route: 048
  14. CLONAZEPAM [Concomitant]
     Dosage: 1MG-2MG
     Route: 048
  15. BENADRYL [Concomitant]
     Indication: AKATHISIA
     Dosage: 50 MG - 150 MG
     Route: 048
  16. GLUCOPHAGE [Concomitant]
     Dosage: 1500MG -  2000MG
     Route: 048
  17. WELLBUTRIN [Concomitant]
  18. ACTOS [Concomitant]
     Route: 048
  19. IBUPROFEN [Concomitant]
     Indication: PAIN
     Dosage: 800 MG EVERY NIGHT AS REQUIRED
     Route: 048
  20. COGENTIN [Concomitant]
     Dosage: 1MG-2MG
     Route: 048
  21. ARTANE [Concomitant]
     Indication: AKATHISIA
     Dosage: 10MG - 15MG
     Route: 048
  22. ATIVAN [Concomitant]
     Indication: ANXIETY
  23. TYLENOL [Concomitant]
     Route: 048
  24. ZOCOR [Concomitant]
     Route: 048

REACTIONS (2)
  - DIABETES MELLITUS [None]
  - NEUROPATHY PERIPHERAL [None]
